FAERS Safety Report 9934655 (Version 1)
Quarter: 2014Q1

REPORT INFORMATION
  Report Type: Spontaneous
  Country: US (occurrence: US)
  Receive Date: 20140228
  Receipt Date: 20140228
  Transmission Date: 20141002
  Serious: No
  Sender: FDA-Public Use
  Company Number: US-ASTRAZENECA-2013SE89667

PATIENT
  Age: 71 Year
  Sex: Male
  Weight: 90.7 kg

DRUGS (3)
  1. TOPROL XL [Suspect]
     Indication: ATRIAL FIBRILLATION
     Route: 048
  2. TOPROL XL [Suspect]
     Indication: ATRIAL FIBRILLATION
     Dosage: GENERIC, METOPROLOL SUCCINATE ER 50 MG BID
     Route: 048
  3. COUMADIN [Concomitant]
     Dosage: 2.5 EOD

REACTIONS (6)
  - Drug effect increased [Unknown]
  - Feeling jittery [Unknown]
  - Heart rate decreased [Unknown]
  - Feeling abnormal [Unknown]
  - Off label use [Unknown]
  - Drug dispensing error [Unknown]
